FAERS Safety Report 7793444-1 (Version None)
Quarter: 2011Q4

REPORT INFORMATION
  Report Type: 
  Country: None (occurrence: None)
  Receive Date: 20111003
  Receipt Date: 20110919
  Transmission Date: 20120403
  Serious: Yes (Hospitalization)
  Sender: FDA-Public Use
  Company Number: PHHY2011DE83655

PATIENT
  Sex: Male

DRUGS (5)
  1. SEROQUEL [Suspect]
     Route: 048
  2. AMLODIPINE BESYLATE AND VALSARTAN [Suspect]
     Dosage: UNK UKN, UNK
     Route: 048
  3. METOPROLOL TARTRATE [Suspect]
     Route: 048
  4. SIMVASTATIN [Suspect]
     Route: 048
  5. ASPIRIN [Suspect]
     Route: 048

REACTIONS (4)
  - SOMNOLENCE [None]
  - ACIDOSIS [None]
  - DISORIENTATION [None]
  - SUICIDE ATTEMPT [None]
